FAERS Safety Report 8539880 (Version 2)
Quarter: 2013Q2

REPORT INFORMATION
  Report Type: Spontaneous
  Country: US (occurrence: US)
  Receive Date: 20120502
  Receipt Date: 20130531
  Transmission Date: 20140414
  Serious: Yes (Other)
  Sender: FDA-Public Use
  Company Number: US-PFIZER INC-2012105938

PATIENT
  Age: 53 Year
  Sex: Female

DRUGS (9)
  1. CHANTIX [Suspect]
     Dosage: UNK
     Dates: start: 20071221, end: 20080505
  2. TRAZODONE [Concomitant]
     Dosage: 100 MG, ONE AND HALF TABLET AT BEDTIME
  3. VERAPAMIL [Concomitant]
     Dosage: 120 MG, 2X/DAY
  4. PLAVIX [Concomitant]
     Dosage: 75 MG, 1X/DAY
  5. ZOLOFT [Concomitant]
     Dosage: 50 MG, 1X/DAY (100 MG HALF TABLET ONCE DAILY)
     Route: 048
  6. ZOLOFT [Concomitant]
     Dosage: 100 MG, 1X/DAY (EVERY MORNING)
     Route: 048
  7. PROVENTIL INHALER [Concomitant]
     Dosage: UNK
  8. CELEXA [Concomitant]
     Dosage: 20 MG, 1X/DAY
  9. CELEXA [Concomitant]
     Dosage: 40 MG, 1X/DAY
     Dates: start: 20071221, end: 20080328

REACTIONS (7)
  - Suicidal ideation [Unknown]
  - Depression [Unknown]
  - Anxiety [Unknown]
  - Mood swings [Unknown]
  - Insomnia [Unknown]
  - Anger [Unknown]
  - Abnormal dreams [Unknown]
